APPROVED DRUG PRODUCT: NITROGLYCERIN
Active Ingredient: NITROGLYCERIN
Strength: 0.4MG
Dosage Form/Route: TABLET;SUBLINGUAL
Application: A218583 | Product #002 | TE Code: AB
Applicant: VIWIT PHARMACEUTICAL CO LTD
Approved: Oct 15, 2024 | RLD: No | RS: No | Type: RX